FAERS Safety Report 19641227 (Version 1)
Quarter: 2021Q3

REPORT INFORMATION
  Report Type: Spontaneous
  Country: CN (occurrence: CN)
  Receive Date: 20210729
  Receipt Date: 20210729
  Transmission Date: 20211014
  Serious: Yes (Hospitalization)
  Sender: FDA-Public Use
  Company Number: CN-BAXTER-2021BAX022500

PATIENT
  Age: 70 Year
  Sex: Female
  Weight: 85 kg

DRUGS (4)
  1. 0.9% SODIUM CHLORIDE INJECTION [Suspect]
     Active Substance: SODIUM CHLORIDE
     Dosage: FIRST CYCLE, PACLITAXEL FOR INJECTION 400 MG + 0.9% SODIUM CHLORIDE INJECTION 100ML (ST, D1)
     Route: 041
     Dates: start: 20210701, end: 20210701
  2. ENDOXAN [Suspect]
     Active Substance: CYCLOPHOSPHAMIDE
     Indication: BREAST CANCER FEMALE
     Dosage: 1ST CYCLE, CYCLOPHOSPHAMIDE FOR INJECTION 1000 MG + 0.9% SODIUM CHLORIDE INJECTION 100ML (ST,D1, Q21
     Route: 041
     Dates: start: 20210701, end: 20210701
  3. 0.9% SODIUM CHLORIDE INJECTION [Suspect]
     Active Substance: SODIUM CHLORIDE
     Indication: MEDICATION DILUTION
     Dosage: FIRST CYCLE, CYCLOPHOSPHAMIDE FOR INJECTION 1000 MG + 0.9% SODIUM CHLORIDE INJECTION 100ML (ST,D1, Q
     Route: 041
     Dates: start: 20210701, end: 20210701
  4. PACLITAXEL. [Suspect]
     Active Substance: PACLITAXEL
     Indication: BREAST CANCER FEMALE
     Dosage: FIRST CYCLE, PACLITAXEL FOR INJECTION 400 MG + 0.9% SODIUM CHLORIDE INJECTION 100ML (ST, D1)
     Route: 041
     Dates: start: 20210701, end: 20210701

REACTIONS (1)
  - Myelosuppression [Recovered/Resolved]

NARRATIVE: CASE EVENT DATE: 20210712
